FAERS Safety Report 14187932 (Version 1)
Quarter: 2017Q4

REPORT INFORMATION
  Report Type: Spontaneous
  Country: JP (occurrence: JP)
  Receive Date: 20171114
  Receipt Date: 20171114
  Transmission Date: 20180321
  Serious: Yes (Death, Hospitalization, Disabling, Other)
  Sender: FDA-Public Use
  Company Number: JP-ELI_LILLY_AND_COMPANY-JP201706007046

PATIENT
  Age: 76 Year
  Sex: Female
  Weight: 61 kg

DRUGS (2)
  1. CYRAMZA [Suspect]
     Active Substance: RAMUCIRUMAB
     Indication: LUNG ADENOCARCINOMA STAGE IV
     Dosage: 10 MG/KG, CYCLICAL
     Route: 041
     Dates: start: 20170420, end: 20170516
  2. DOCETAXEL. [Concomitant]
     Active Substance: DOCETAXEL
     Indication: LUNG ADENOCARCINOMA STAGE IV
     Dosage: 60 MG/M2, CYCLICAL
     Route: 041
     Dates: start: 20170420, end: 20170516

REACTIONS (3)
  - Oedema peripheral [Not Recovered/Not Resolved]
  - Death [Fatal]
  - Hypoalbuminaemia [Not Recovered/Not Resolved]

NARRATIVE: CASE EVENT DATE: 20170608
